FAERS Safety Report 17804793 (Version 2)
Quarter: 2020Q2

REPORT INFORMATION
  Report Type: Report from Study
  Country: GB (occurrence: GB)
  Receive Date: 20200519
  Receipt Date: 20200602
  Transmission Date: 20200714
  Serious: Yes (Hospitalization)
  Sender: FDA-Public Use
  Company Number: NVSC2020GB136313

PATIENT
  Age: 85 Year
  Sex: Female

DRUGS (1)
  1. HYRIMOZ [Suspect]
     Active Substance: ADALIMUMAB-ADAZ
     Indication: RHEUMATOID ARTHRITIS
     Dosage: 1 DF, BIW
     Route: 065

REACTIONS (9)
  - Confusional state [Unknown]
  - Urinary tract infection [Unknown]
  - Contusion [Unknown]
  - Dehydration [Unknown]
  - Back pain [Unknown]
  - Mobility decreased [Unknown]
  - Pollakiuria [Unknown]
  - Drug ineffective [Unknown]
  - Fall [Unknown]

NARRATIVE: CASE EVENT DATE: 20200502
